FAERS Safety Report 16610471 (Version 1)
Quarter: 2019Q3

REPORT INFORMATION
  Report Type: Spontaneous
  Country: CN (occurrence: CN)
  Receive Date: 20190722
  Receipt Date: 20190722
  Transmission Date: 20191004
  Serious: Yes (Life-Threatening, Hospitalization)
  Sender: FDA-Public Use
  Company Number: CN-NOVOPROD-674334

PATIENT
  Age: 71 Year
  Sex: Male
  Weight: 65 kg

DRUGS (3)
  1. NOVOMIX 30 FLEXPEN [Suspect]
     Active Substance: INSULIN ASPART
     Indication: SUICIDE ATTEMPT
     Dosage: 280 IU, QD
     Route: 058
     Dates: start: 20190707, end: 20190707
  2. DIAZEPAM. [Suspect]
     Active Substance: DIAZEPAM
     Indication: SUICIDE ATTEMPT
     Dosage: 75 MG, QD, TOOK 30 TABLETS
     Route: 048
     Dates: start: 20190707, end: 20190707
  3. DIAZEPAM. [Suspect]
     Active Substance: DIAZEPAM
     Indication: LOSS OF CONSCIOUSNESS

REACTIONS (3)
  - Loss of consciousness [Recovering/Resolving]
  - Hypoglycaemia [Recovering/Resolving]
  - Suicide attempt [Unknown]

NARRATIVE: CASE EVENT DATE: 20190707
